FAERS Safety Report 20099337 (Version 2)
Quarter: 2021Q4

REPORT INFORMATION
  Report Type: Report from Study
  Country: BE (occurrence: BE)
  Receive Date: 20211122
  Receipt Date: 20211127
  Transmission Date: 20220303
  Serious: Yes (Death, Life-Threatening)
  Sender: FDA-Public Use
  Company Number: BE-AMGEN-BELCT2021184956

PATIENT
  Age: 65 Year
  Sex: Female
  Weight: 65 kg

DRUGS (10)
  1. AMG-510 [Suspect]
     Active Substance: AMG-510
     Indication: K-ras gene mutation
     Dosage: 960 MILLIGRAM
     Route: 048
     Dates: start: 20211115, end: 20211117
  2. AMG-510 [Suspect]
     Active Substance: AMG-510
     Indication: Non-small cell lung cancer stage IV
  3. NEUROBION [CYANOCOBALAMIN;PYRIDOXINE;THIAMINE] [Concomitant]
     Dosage: 1 UNK
     Route: 030
     Dates: start: 202010
  4. LYRICA [Concomitant]
     Active Substance: PREGABALIN
     Dosage: 75 MILLIGRAM
     Route: 048
     Dates: start: 2019
  5. ULTIBRO BREEZHALER [INDACATEROL MALEATE] [Concomitant]
     Dosage: 1 UNK
     Route: 050
     Dates: start: 202010
  6. VISTA D3 [Concomitant]
     Dosage: 1000 UNK
     Route: 048
     Dates: start: 202010
  7. ACETAMINOPHEN [Concomitant]
     Active Substance: ACETAMINOPHEN
     Dosage: 1 GRAM
     Route: 048
     Dates: start: 2019
  8. LEVOTHYROXINE [Concomitant]
     Active Substance: LEVOTHYROXINE
     Dosage: 75-100 MICROGRAM
     Route: 048
     Dates: start: 20210311
  9. HYDROCORTISONE [Concomitant]
     Active Substance: HYDROCORTISONE
     Dosage: 15 MILLIGRAM
     Route: 048
     Dates: start: 202107
  10. FOLIC ACID [Concomitant]
     Active Substance: FOLIC ACID
     Dosage: 0.4 MILLIGRAM
     Route: 048
     Dates: start: 202010

REACTIONS (1)
  - Death [Fatal]

NARRATIVE: CASE EVENT DATE: 20211118
